FAERS Safety Report 20736777 (Version 1)
Quarter: 2022Q2

REPORT INFORMATION
  Report Type: Spontaneous
  Country: US (occurrence: US)
  Receive Date: 20220421
  Receipt Date: 20220421
  Transmission Date: 20220721
  Serious: No
  Sender: FDA-Public Use
  Company Number: US-Kiniksa Pharmaceuticals Ltd.-2021KPU000633

PATIENT
  Sex: Male

DRUGS (2)
  1. ARCALYST [Suspect]
     Active Substance: RILONACEPT
     Indication: Pericarditis
     Route: 058
  2. OTC Steroid Cream [Concomitant]
     Indication: Injection site reaction

REACTIONS (3)
  - Injection site reaction [Unknown]
  - Injection site reaction [Unknown]
  - Injection site reaction [Unknown]
